FAERS Safety Report 17545083 (Version 1)
Quarter: 2020Q1

REPORT INFORMATION
  Report Type: Spontaneous
  Country: SI (occurrence: SI)
  Receive Date: 20200316
  Receipt Date: 20200316
  Transmission Date: 20200409
  Serious: Yes (Other)
  Sender: FDA-Public Use
  Company Number: SI-BRISTOL-MYERS SQUIBB COMPANY-BMS-2020-021923

PATIENT
  Age: 63 Year

DRUGS (3)
  1. PRENESSA [Concomitant]
     Active Substance: PERINDOPRIL
     Indication: PRODUCT USED FOR UNKNOWN INDICATION
     Dosage: 4 MILLIGRAM
     Route: 065
  2. NIVOLUMAB [Suspect]
     Active Substance: NIVOLUMAB
     Indication: METASTASES TO LUNG
     Dosage: 5 CYCLES ON EVERY 4 WEEKS
     Route: 065
     Dates: start: 201812, end: 201904
  3. ASPIRIN [ACETYLSALICYLIC ACID] [Concomitant]
     Active Substance: ASPIRIN
     Indication: PRODUCT USED FOR UNKNOWN INDICATION
     Dosage: 100 MILLIGRAM
     Route: 065

REACTIONS (5)
  - Myopathy [Recovering/Resolving]
  - Rash maculo-papular [Recovering/Resolving]
  - Pain in extremity [Recovering/Resolving]
  - Syncope [Recovering/Resolving]
  - Skin maceration [Recovering/Resolving]
